FAERS Safety Report 9462043 (Version 1)
Quarter: 2013Q3

REPORT INFORMATION
  Report Type: Spontaneous
  Country: US (occurrence: None)
  Receive Date: 20130815
  Receipt Date: 20130815
  Transmission Date: 20140515
  Serious: Yes (Hospitalization)
  Sender: FDA-Public Use
  Company Number: None

PATIENT
  Age: 73 Year
  Sex: Female
  Weight: 68.1 kg

DRUGS (22)
  1. LANTUS [Suspect]
     Dosage: 31UNITS, QHS, SQ
  2. LANTUS [Suspect]
     Dosage: 31UNITS, QHS, SQ
  3. GLIPIZIDE [Suspect]
     Route: 048
  4. GLIPIZIDE [Suspect]
     Route: 048
  5. TYLENOL [Concomitant]
  6. MAG OX [Concomitant]
  7. MVI [Concomitant]
  8. ATORVASTATIN [Concomitant]
  9. KAOPECTATE [Concomitant]
  10. MECLIZINE [Concomitant]
  11. SACTRIM [Concomitant]
  12. CARBIDOPA/LEVODOPA [Concomitant]
  13. OCULAR [Concomitant]
  14. CLARITIN [Concomitant]
  15. TRAZODONE [Concomitant]
  16. ASA [Concomitant]
  17. METOPROLOL [Concomitant]
  18. PEPID [Concomitant]
  19. ATALOPEOM [Concomitant]
  20. ZOFRAN [Concomitant]
  21. MOM [Concomitant]
  22. LISINOPRIL [Concomitant]

REACTIONS (2)
  - Urinary tract infection [None]
  - Hypoglycaemia [None]
